FAERS Safety Report 24788041 (Version 1)
Quarter: 2024Q4

REPORT INFORMATION
  Report Type: Report from Study
  Country: US (occurrence: US)
  Receive Date: 20241230
  Receipt Date: 20241230
  Transmission Date: 20250115
  Serious: Yes (Other)
  Sender: PAREXEL
  Company Number: US-STEMLINE THERAPEUTICS B.V.-2024-STML-US006393

PATIENT

DRUGS (4)
  1. ORSERDU [Suspect]
     Active Substance: ELACESTRANT
     Indication: Breast cancer female
     Dosage: 345 MG, DAILY
     Route: 048
     Dates: start: 20241123
  2. TRUQAP [Concomitant]
     Active Substance: CAPIVASERTIB
     Indication: Breast cancer female
     Dosage: 400 MG, BID
     Route: 048
     Dates: start: 20241123
  3. ELIQUIS [Concomitant]
     Active Substance: APIXABAN
     Indication: Product used for unknown indication
     Dosage: UNK
  4. TRULICITY [Concomitant]
     Active Substance: DULAGLUTIDE
     Indication: Product used for unknown indication
     Dosage: UNK

REACTIONS (5)
  - Diabetes mellitus [Recovering/Resolving]
  - Salivary hypersecretion [Not Recovered/Not Resolved]
  - Blood glucose increased [Recovering/Resolving]
  - Diarrhoea [Not Recovered/Not Resolved]
  - Nausea [Recovered/Resolved]

NARRATIVE: CASE EVENT DATE: 20241101
